FAERS Safety Report 10088967 (Version 1)
Quarter: 2014Q2

REPORT INFORMATION
  Report Type: Spontaneous
  Country: US (occurrence: None)
  Receive Date: 20140418
  Receipt Date: 20140418
  Transmission Date: 20141212
  Serious: Yes (Life-Threatening, Hospitalization, Other)
  Sender: FDA-Public Use
  Company Number: None

PATIENT
  Age: 69 Year
  Sex: Female
  Weight: 68.04 kg

DRUGS (15)
  1. DISOPYRAMIDE [Suspect]
     Indication: HYPERTROPHIC CARDIOMYOPATHY
     Dosage: 100 MG CAPSULES  2 PILLS PER DAY  TAKE ON TABLET BY MOUTH TWO TIMES A DAY
     Route: 048
     Dates: start: 20110712, end: 20110725
  2. DISOPYRAMIDE [Suspect]
     Indication: ATRIAL FIBRILLATION
     Dosage: 100 MG CAPSULES  2 PILLS PER DAY  TAKE ON TABLET BY MOUTH TWO TIMES A DAY
     Route: 048
     Dates: start: 20110712, end: 20110725
  3. DISOPYRAMIDE [Suspect]
     Indication: TACHYCARDIA
     Dosage: 100 MG CAPSULES  2 PILLS PER DAY  TAKE ON TABLET BY MOUTH TWO TIMES A DAY
     Route: 048
     Dates: start: 20110712, end: 20110725
  4. CLONAZEPAM [Concomitant]
  5. FUROSEMIDE [Concomitant]
  6. POTASSIUM CL ER [Concomitant]
  7. METOPROLOL TARTRATE [Concomitant]
  8. SPIRONOLACTONE [Concomitant]
  9. VERAPAMIL [Suspect]
  10. WARFARIN [Concomitant]
  11. DIGOXIN [Concomitant]
  12. ASPIRIN [Concomitant]
  13. CITRACAL + D3 [Concomitant]
  14. VITAMIN D3 [Concomitant]
  15. I-CAPS EYE VITAMIN (LUTEIN + ZEAXANTHIN) [Concomitant]

REACTIONS (6)
  - Toxicity to various agents [None]
  - Drug administered to patient of inappropriate age [None]
  - Hepatic failure [None]
  - Renal failure [None]
  - Hepatic cyst [None]
  - Hypoglycaemia [None]
